FAERS Safety Report 7809158-5 (Version None)
Quarter: 2011Q4

REPORT INFORMATION
  Report Type: 
  Country: None (occurrence: None)
  Receive Date: 20111012
  Receipt Date: 20110929
  Transmission Date: 20120403
  Serious: Yes (Death, Hospitalization)
  Sender: FDA-Public Use
  Company Number: AU-ROCHE-796182

PATIENT
  Sex: Male
  Weight: 71.8 kg

DRUGS (8)
  1. BENDAMUSTINE [Suspect]
     Indication: NON-HODGKIN'S LYMPHOMA
     Route: 042
     Dates: start: 20101206, end: 20110602
  2. IRBESARTAN + HYDROCHLOROTHIAZIDE [Concomitant]
     Indication: PRODUCT USED FOR UNKNOWN INDICATION
     Dates: start: 19900101, end: 20110612
  3. ALLOPURINOL [Concomitant]
     Indication: PRODUCT USED FOR UNKNOWN INDICATION
     Dates: start: 19800101, end: 20110612
  4. MAXOLON [Concomitant]
     Indication: PRODUCT USED FOR UNKNOWN INDICATION
     Dates: start: 20100101, end: 20110612
  5. ACETAMINOPHEN [Concomitant]
     Indication: PRODUCT USED FOR UNKNOWN INDICATION
  6. PIPERACILLIN AND TAZOBACTAM [Concomitant]
     Indication: INFECTION
     Dates: start: 20110608, end: 20110618
  7. VALTREX [Concomitant]
     Indication: INFECTION
     Dates: start: 20110607, end: 20110619
  8. MABTHERA [Suspect]
     Indication: NON-HODGKIN'S LYMPHOMA
     Route: 042
     Dates: start: 20101206, end: 20110602

REACTIONS (2)
  - PNEUMOCYSTIS JIROVECI PNEUMONIA [None]
  - HYPOXIA [None]
